FAERS Safety Report 5812044-3 (Version None)
Quarter: 2008Q3

REPORT INFORMATION
  Report Type: 
  Country: None (occurrence: None)
  Receive Date: 20080716
  Receipt Date: 20080708
  Transmission Date: 20090109
  Serious: Yes (Hospitalization, Other)
  Sender: FDA-Public Use
  Company Number: PHEH2008US05173

PATIENT
  Sex: Female

DRUGS (9)
  1. DIOVAN HCT [Suspect]
     Indication: HYPERTENSION
     Dosage: 160MG VAL/25MG HCT, QD
     Route: 048
     Dates: start: 20030701, end: 20080501
  2. DIOVAN HCT [Suspect]
     Dosage: 80MG VAL/12.5MG HCT, QD
     Route: 048
     Dates: start: 20080501
  3. CARVEDILOL [Concomitant]
     Dosage: UNK, UNK
  4. LASIX [Concomitant]
     Dosage: UNK, UNK
  5. ALLOPURINOL [Concomitant]
     Dosage: 300 MG, QD
     Route: 048
     Dates: start: 20030701
  6. GLIPIZIDE [Concomitant]
     Dosage: 10 MG, UNK
     Dates: start: 20030701
  7. METFORMIN [Concomitant]
     Dosage: 500 MG, QD
     Route: 048
     Dates: start: 20030701
  8. CITALOPRAM HYDROBROMIDE [Concomitant]
     Dosage: 20 MG, QD
     Route: 048
     Dates: start: 20030701
  9. LEVOTHYROXINE SODIUM [Concomitant]
     Dosage: .3 MG, QD
     Route: 048

REACTIONS (11)
  - BLOOD CREATININE INCREASED [None]
  - BLOOD PRESSURE FLUCTUATION [None]
  - BLOOD UREA INCREASED [None]
  - CATHETERISATION CARDIAC [None]
  - DIZZINESS [None]
  - HYPOAESTHESIA [None]
  - LOSS OF CONSCIOUSNESS [None]
  - MUSCULAR WEAKNESS [None]
  - MYOCARDIAL INFARCTION [None]
  - ORTHOSTATIC HYPOTENSION [None]
  - SYNCOPE [None]
